FAERS Safety Report 22164888 (Version 1)
Quarter: 2023Q2

REPORT INFORMATION
  Report Type: Spontaneous
  Country: US (occurrence: US)
  Receive Date: 20230403
  Receipt Date: 20230403
  Transmission Date: 20230722
  Serious: No
  Sender: FDA-Public Use
  Company Number: US-Accord-290387

PATIENT
  Sex: Female

DRUGS (2)
  1. CARBIDOPA\LEVODOPA [Suspect]
     Active Substance: CARBIDOPA\LEVODOPA
     Indication: Corticobasal degeneration
     Dosage: 25/100 MG/ SPLIT TABLET AND TAKE 1/4 TABLET ONCE A DAY TO TITRATE TO?WHOLE TABLET IN 9 WEEKS TIME
     Dates: start: 20221024
  2. EXELON [Concomitant]
     Active Substance: RIVASTIGMINE TARTRATE
     Dosage: ONCE A DAY EVERY 24?HOURS

REACTIONS (5)
  - Nausea [Unknown]
  - Vomiting [Unknown]
  - Illness [Unknown]
  - Off label use [Unknown]
  - Wrong technique in product usage process [Unknown]
